FAERS Safety Report 7929709-X (Version None)
Quarter: 2011Q4

REPORT INFORMATION
  Report Type: 
  Country: None (occurrence: None)
  Receive Date: 20111121
  Receipt Date: 20111111
  Transmission Date: 20120403
  Serious: Yes (Other)
  Sender: FDA-Public Use
  Company Number: IT-JNJFOC-20101206649

PATIENT
  Age: 40 Year
  Sex: Male

DRUGS (7)
  1. INFLIXIMAB, RECOMBINANT [Suspect]
     Dosage: WEEKS 0, 2, AND 6
     Route: 042
     Dates: start: 20070901
  2. CORTICOSTEROIDS [Concomitant]
  3. INFLIXIMAB, RECOMBINANT [Suspect]
     Route: 042
  4. CYCLOSPORINE [Concomitant]
     Dates: start: 20061001
  5. INFLIXIMAB, RECOMBINANT [Suspect]
     Indication: BEHCET'S SYNDROME
     Route: 042
  6. CYCLOSPORINE [Concomitant]
     Dates: start: 20061001
  7. CYCLOSPORINE [Concomitant]
     Dates: start: 20060201

REACTIONS (2)
  - BEHCET'S SYNDROME [None]
  - DRUG INEFFECTIVE [None]
